FAERS Safety Report 14305890 (Version 9)
Quarter: 2019Q2

REPORT INFORMATION
  Report Type: Report from Study
  Country: US (occurrence: US)
  Receive Date: 20171219
  Receipt Date: 20190604
  Transmission Date: 20190711
  Serious: Yes (Hospitalization, Other)
  Sender: FDA-Public Use
  Company Number: US-ACTELION-A-NJ2017-164316

PATIENT
  Age: 71 Year
  Sex: Female
  Weight: 84.35 kg

DRUGS (4)
  1. XARELTO [Concomitant]
     Active Substance: RIVAROXABAN
  2. DILTIAZEM. [Concomitant]
     Active Substance: DILTIAZEM
  3. UPTRAVI [Suspect]
     Active Substance: SELEXIPAG
     Indication: PULMONARY ARTERIAL HYPERTENSION
     Dosage: 1600 MCG, BID
     Route: 048
  4. OPSUMIT [Suspect]
     Active Substance: MACITENTAN
     Indication: PULMONARY ARTERIAL HYPERTENSION
     Dosage: 10 MG, QD
     Route: 048
     Dates: start: 20141110

REACTIONS (25)
  - Dehydration [Unknown]
  - Condition aggravated [Unknown]
  - Myalgia [Unknown]
  - Fluid retention [Unknown]
  - Malaise [Unknown]
  - Hepatic neoplasm [Unknown]
  - Balance disorder [Unknown]
  - Musculoskeletal pain [Unknown]
  - Blood calcium increased [Unknown]
  - Blood potassium increased [Unknown]
  - Pulmonary arterial hypertension [Unknown]
  - Cardiomegaly [Unknown]
  - Gout [Unknown]
  - Fatigue [Unknown]
  - Blood electrolytes abnormal [Unknown]
  - Thyroid disorder [Unknown]
  - Sputum discoloured [Unknown]
  - Food poisoning [Unknown]
  - Abdominal discomfort [Unknown]
  - Parathyroid disorder [Unknown]
  - Dyspnoea [Unknown]
  - Rotator cuff syndrome [Unknown]
  - Atrial fibrillation [Unknown]
  - Oedema peripheral [Recovering/Resolving]
  - Arthralgia [Unknown]

NARRATIVE: CASE EVENT DATE: 2014
